FAERS Safety Report 7824411-7 (Version None)
Quarter: 2011Q4

REPORT INFORMATION
  Report Type: 
  Country: None (occurrence: None)
  Receive Date: 20111019
  Receipt Date: 20111010
  Transmission Date: 20120403
  Serious: Yes (Life-Threatening, Hospitalization)
  Sender: FDA-Public Use
  Company Number: GB-TEVA-304273ISR

PATIENT
  Age: 52 Year
  Sex: Female

DRUGS (6)
  1. DILTIAZEM HCL [Suspect]
     Route: 048
  2. TEMAZEPAM [Suspect]
     Route: 048
  3. DIHYDROCODEINE BITARTRATE INJ [Suspect]
     Route: 048
  4. DIAZEPAM [Suspect]
     Route: 048
  5. CITALOPRAM [Suspect]
     Route: 048
  6. AMITRIPTYLINE HCL [Suspect]
     Route: 048

REACTIONS (7)
  - BLOOD PRESSURE DECREASED [None]
  - RESPIRATORY RATE DECREASED [None]
  - HEART RATE DECREASED [None]
  - COMA SCALE ABNORMAL [None]
  - ATRIOVENTRICULAR BLOCK COMPLETE [None]
  - PNEUMONIA ASPIRATION [None]
  - OVERDOSE [None]
